FAERS Safety Report 6142775-X (Version None)
Quarter: 2009Q1

REPORT INFORMATION
  Report Type: 
  Country: None (occurrence: None)
  Receive Date: 20090330
  Receipt Date: 20080328
  Transmission Date: 20090719
  Serious: No
  Sender: FDA-Public Use
  Company Number: 08H-163-0314078-00

PATIENT
  Sex: Female
  Weight: 64.9 kg

DRUGS (1)
  1. HEPARIN SODIUM IN 0.45% NACL 100 UNITS/ML INJECTION, FLEX. CONTAINER ( [Suspect]
     Dosage: 20,000 UNITS, OVER THE COURSE OF 2-3HRS
     Dates: start: 20080101

REACTIONS (2)
  - INCORRECT DRUG ADMINISTRATION RATE [None]
  - MEDICATION ERROR [None]
